FAERS Safety Report 16679249 (Version 4)
Quarter: 2019Q4

REPORT INFORMATION
  Report Type: Spontaneous
  Country: DE (occurrence: DE)
  Receive Date: 20190807
  Receipt Date: 20191025
  Transmission Date: 20200122
  Serious: Yes (Hospitalization, Other)
  Sender: FDA-Public Use
  Company Number: DE-GLAXOSMITHKLINE-DE2019141972

PATIENT
  Age: 66 Year
  Sex: Female
  Weight: 68 kg

DRUGS (7)
  1. OFLOX [Suspect]
     Active Substance: OFLOXACIN
     Indication: CYSTITIS NONINFECTIVE
     Dosage: UNK (2 PACKS)
     Route: 065
     Dates: start: 201810
  2. CIPROFLOXACIN. [Suspect]
     Active Substance: CIPROFLOXACIN
     Indication: BRONCHITIS
     Dosage: UNK
     Route: 048
     Dates: start: 201311, end: 201311
  3. LEVOFLOXACIN. [Suspect]
     Active Substance: LEVOFLOXACIN
     Indication: BRONCHITIS
     Dosage: 500 MG, 1D (500 MG 1 DAYS A TOTAL OF 7 TABLETS)
     Route: 048
     Dates: start: 201811, end: 201811
  4. CIPROFLOXACIN. [Suspect]
     Active Substance: CIPROFLOXACIN
     Dosage: 1000 MG, QD (A TOTAL OF 14 TABLETS 1000 MG 1 DAYS (1000 MG,1 D)
     Route: 065
     Dates: start: 201902, end: 201902
  5. COTRIM [Suspect]
     Active Substance: SULFAMETHOXAZOLE\TRIMETHOPRIM
     Indication: CYSTITIS NONINFECTIVE
     Dosage: UNK
     Route: 065
     Dates: start: 201812
  6. OFLOX [Suspect]
     Active Substance: OFLOXACIN
     Dosage: UNK (2 PACKS)
     Route: 065
     Dates: start: 201812
  7. CEFUROXIME AXETIL. [Suspect]
     Active Substance: CEFUROXIME AXETIL
     Indication: CYSTITIS NONINFECTIVE
     Dosage: UNK
     Route: 065
     Dates: start: 201904

REACTIONS (13)
  - Back pain [Unknown]
  - Arthralgia [Unknown]
  - Tendon rupture [Unknown]
  - Tendon disorder [Unknown]
  - Musculoskeletal pain [Unknown]
  - Presyncope [Unknown]
  - Anxiety [Unknown]
  - Muscular weakness [Unknown]
  - General physical health deterioration [Unknown]
  - Formication [Unknown]
  - Illusion [Unknown]
  - Pain in extremity [Unknown]
  - Fibromyalgia [Unknown]

NARRATIVE: CASE EVENT DATE: 2019
